FAERS Safety Report 5393420-2 (Version None)
Quarter: 2007Q3

REPORT INFORMATION
  Report Type: 
  Country: None (occurrence: None)
  Receive Date: 20070723
  Receipt Date: 20070712
  Transmission Date: 20080115
  Serious: Yes (Hospitalization)
  Sender: FDA-Public Use
  Company Number: BE-JNJFOC-20070703207

PATIENT
  Sex: Female

DRUGS (2)
  1. REMICADE [Suspect]
     Route: 042
  2. REMICADE [Suspect]
     Indication: COLITIS ULCERATIVE
     Dosage: TWO INFUSIONS ON UNSPECIFIED DATES.
     Route: 042

REACTIONS (3)
  - HAEMATURIA [None]
  - LUPUS-LIKE SYNDROME [None]
  - MYALGIA [None]
